FAERS Safety Report 12435858 (Version 1)
Quarter: 2016Q2

REPORT INFORMATION
  Report Type: Spontaneous
  Country: US (occurrence: US)
  Receive Date: 20160603
  Receipt Date: 20160603
  Transmission Date: 20160815
  Serious: Yes (Other)
  Sender: FDA-Public Use
  Company Number: US-ASTRAZENECA-2016SE57552

PATIENT
  Sex: Female

DRUGS (4)
  1. FARXIGA [Suspect]
     Active Substance: DAPAGLIFLOZIN PROPANEDIOL
     Route: 048
  2. HUMULIN R500 [Concomitant]
  3. INSULIN [Concomitant]
     Active Substance: INSULIN NOS
  4. VICTOZA [Concomitant]
     Active Substance: LIRAGLUTIDE

REACTIONS (6)
  - Blood cholesterol increased [Unknown]
  - Intentional product misuse [Unknown]
  - Silent myocardial infarction [Unknown]
  - Glycosylated haemoglobin increased [Unknown]
  - Diabetic endorgan damage [Unknown]
  - Blood pressure abnormal [Unknown]
